FAERS Safety Report 11469840 (Version 1)
Quarter: 2015Q3

REPORT INFORMATION
  Report Type: Spontaneous
  Country: CH (occurrence: CH)
  Receive Date: 20150908
  Receipt Date: 20150908
  Transmission Date: 20151125
  Serious: Yes (Other)
  Sender: FDA-Public Use
  Company Number: CH-MYLANLABS-2015M1029757

PATIENT

DRUGS (5)
  1. DEXAMETHASONE. [Suspect]
     Active Substance: DEXAMETHASONE
     Dosage: 3 DROP/EYE/DAY (0.3 MG/DAY); WEEK 9-10
     Route: 047
  2. DEXAMETHASONE. [Suspect]
     Active Substance: DEXAMETHASONE
     Indication: PRODUCT USED FOR UNKNOWN INDICATION
     Dosage: 12 DROP/EYE/DAY (1.3MG/DAY); WEEK 0-2
     Route: 047
  3. DEXAMETHASONE. [Suspect]
     Active Substance: DEXAMETHASONE
     Dosage: 6 DROP/EYE/DAY (0.7 MG/DAY); WEEK 3-4UNK
     Route: 047
  4. DEXAMETHASONE. [Suspect]
     Active Substance: DEXAMETHASONE
     Dosage: 5 DROP/EYE/DAY (0.6 MG/DAY); WEEK 5-6
     Route: 047
  5. DEXAMETHASONE. [Suspect]
     Active Substance: DEXAMETHASONE
     Dosage: 4 DROP/EYE/DAY (0.4 MG/DAY); WEEK 7-8
     Route: 047

REACTIONS (1)
  - Cushing^s syndrome [Recovered/Resolved]
